FAERS Safety Report 8401385-1 (Version None)
Quarter: 2012Q2

REPORT INFORMATION
  Report Type: 
  Country: None (occurrence: None)
  Receive Date: 20120601
  Receipt Date: 20120523
  Transmission Date: 20120825
  Serious: Yes (Other)
  Sender: FDA-Public Use
  Company Number: CA-JNJFOC-20120518648

PATIENT
  Sex: Male
  Weight: 110 kg

DRUGS (31)
  1. ALL OTHER THERAPEUTICS [Concomitant]
     Route: 065
  2. DIOVAN [Concomitant]
     Route: 065
  3. VITAMIN A [Concomitant]
     Route: 065
  4. VITAMIN C [Concomitant]
     Route: 065
  5. CLOTRIMAZOLE [Concomitant]
     Route: 065
  6. CLINDAMYCIN [Concomitant]
     Route: 065
  7. INSULIN [Concomitant]
     Route: 065
  8. PHAZYME [Concomitant]
     Route: 065
  9. SALOFALK ENEMA [Concomitant]
     Route: 065
  10. REMICADE [Suspect]
     Indication: COLITIS ULCERATIVE
     Route: 042
     Dates: start: 20090429
  11. OMEPRAZOLE [Concomitant]
     Route: 065
  12. METAMUCIL-2 [Concomitant]
     Route: 065
  13. VITAMIN B-12 [Concomitant]
     Route: 065
  14. FOLIC ACID [Concomitant]
     Route: 065
  15. POTASSIUM CHLORIDE [Concomitant]
     Route: 065
  16. PREDNISONE TAB [Concomitant]
     Route: 065
  17. CODEINE [Concomitant]
     Route: 065
  18. MIACALCIN [Concomitant]
     Route: 065
  19. ACIDOPHILUS [Concomitant]
     Route: 065
  20. BECLOMETHASONE DIPROPIONATE [Concomitant]
     Route: 065
  21. MULTI-VITAMINS [Concomitant]
     Route: 065
  22. AZATHIOPRINE [Concomitant]
     Route: 065
  23. CIPROFLOXACIN [Concomitant]
     Route: 065
  24. VITAMIN D [Concomitant]
     Route: 065
  25. AMITRIPTYLINE HCL [Concomitant]
     Route: 065
  26. CALCIUM [Concomitant]
     Route: 065
  27. VITAMIN E [Concomitant]
     Route: 065
  28. HYDROCORTISONE [Concomitant]
     Route: 065
  29. AMOXICILLIN [Concomitant]
     Route: 065
  30. VITAMIN B COMPLEX CAP [Concomitant]
     Route: 065
  31. METHOTREXATE [Concomitant]
     Route: 065

REACTIONS (5)
  - INTESTINAL ULCER [None]
  - HAEMORRHAGE [None]
  - POUCHITIS [None]
  - ABDOMINAL PAIN [None]
  - SCAR [None]
